FAERS Safety Report 21976196 (Version 2)
Quarter: 2023Q1

REPORT INFORMATION
  Report Type: Spontaneous
  Country: US (occurrence: US)
  Receive Date: 20230210
  Receipt Date: 20230223
  Transmission Date: 20230417
  Serious: Yes (Hospitalization, Other)
  Sender: FDA-Public Use
  Company Number: US-BRISTOL-MYERS SQUIBB COMPANY-2023-019716

PATIENT
  Age: 72 Year
  Sex: Female

DRUGS (1)
  1. LENALIDOMIDE [Suspect]
     Active Substance: LENALIDOMIDE
     Indication: Plasma cell myeloma
     Dosage: FREQ: TAKE 1 CAPSULE ?(25MG TOTAL) BY ?MOUTH EVERY DAY ?ON DAYS 1-21 OF ?EACH 28 DAY ?TREATMENT CYCL
     Route: 048
     Dates: start: 20230123, end: 20230131

REACTIONS (4)
  - White blood cell count decreased [Unknown]
  - Pruritus [Unknown]
  - Epistaxis [Unknown]
  - Nephrolithiasis [Unknown]
